FAERS Safety Report 5786038-0 (Version None)
Quarter: 2008Q2

REPORT INFORMATION
  Report Type: 
  Country: None (occurrence: None)
  Receive Date: 20080620
  Receipt Date: 20080620
  Transmission Date: 20081010
  Serious: Yes (Death, Hospitalization)
  Sender: FDA-Public Use
  Company Number: None

PATIENT
  Age: 57 Year
  Sex: Male
  Weight: 165.8 kg

DRUGS (13)
  1. WARFARIN SODIUM [Suspect]
     Indication: ATRIAL FIBRILLATION
     Dosage: 5 MG DAILY PO CHRONIC
     Route: 048
  2. LASIX [Concomitant]
  3. FLONASE [Concomitant]
  4. CARTIA XT [Concomitant]
  5. ASPIRIN [Concomitant]
  6. SENNA [Concomitant]
  7. CLARITIN [Concomitant]
  8. TYLENOL W/ CODEINE NO. 3 [Concomitant]
  9. ATENOLOL [Concomitant]
  10. ULTRAM [Concomitant]
  11. LOVASTATIN [Concomitant]
  12. LISINOPRIL [Concomitant]
  13. GLYBURIDE [Concomitant]

REACTIONS (7)
  - ANAEMIA [None]
  - CONSTIPATION [None]
  - DEPRESSED LEVEL OF CONSCIOUSNESS [None]
  - HYPOGLYCAEMIA [None]
  - HYPOTENSION [None]
  - INTERNATIONAL NORMALISED RATIO INCREASED [None]
  - WEIGHT DECREASED [None]
